FAERS Safety Report 8809131 (Version 4)
Quarter: 2012Q4

REPORT INFORMATION
  Report Type: 
  Country: US (occurrence: US)
  Receive Date: 20120926
  Receipt Date: 20121123
  Transmission Date: 20130627
  Serious: Yes (Hospitalization)
  Sender: FDA-Public Use
  Company Number: US-PFIZER INC-2012236750

PATIENT
  Age: 50 Year
  Sex: Female
  Weight: 76.19 kg

DRUGS (13)
  1. GABAPENTIN [Suspect]
     Indication: GRAND MAL SEIZURE
     Dosage: UNK
     Dates: start: 2011
  2. NEURONTIN [Suspect]
     Indication: SEIZURES
     Dosage: 800 mg
  3. NEURONTIN [Suspect]
     Dosage: 800 mg, UNK
  4. NEURONTIN [Suspect]
     Dosage: 1600 mg, 4x/day (800mg, 2 tabs QID)
     Route: 048
  5. DILANTIN [Concomitant]
     Indication: GRAND MAL SEIZURE
     Dosage: 225mg in the morning and 250mg at bedtime
  6. KEPPRA [Concomitant]
     Indication: GRAND MAL SEIZURE
     Dosage: 750 mg, 2x/day
  7. LEVETIRACETAM [Concomitant]
     Dosage: 750 mg, 2x/day (BD)
  8. XANAX [Concomitant]
     Dosage: 1 mg, 3x/day (TID)
  9. XANAX [Concomitant]
     Dosage: 2 mg, at HS
  10. SEROQUEL [Concomitant]
     Dosage: 200 mg, AM
  11. SEROQUEL [Concomitant]
     Dosage: 600 mg, PM
  12. SYNTHROID [Concomitant]
     Dosage: UNK
  13. ESTRADIOL [Concomitant]
     Dosage: UNK

REACTIONS (6)
  - Convulsion [Unknown]
  - Vomiting [Recovered/Resolved]
  - Diarrhoea [Recovered/Resolved]
  - Malaise [Recovered/Resolved]
  - Dysgeusia [Recovered/Resolved]
  - Incorrect dose administered [Unknown]
